APPROVED DRUG PRODUCT: CELECOXIB
Active Ingredient: CELECOXIB
Strength: 400MG
Dosage Form/Route: CAPSULE;ORAL
Application: A208701 | Product #004 | TE Code: AB
Applicant: CADILA PHARMACEUTICALS LTD
Approved: Nov 14, 2019 | RLD: No | RS: No | Type: RX